FAERS Safety Report 9617508 (Version 1)
Quarter: 2013Q4

REPORT INFORMATION
  Report Type: Spontaneous
  Country: US (occurrence: US)
  Receive Date: 20131011
  Receipt Date: 20131011
  Transmission Date: 20140711
  Serious: Yes (Hospitalization)
  Sender: FDA-Public Use
  Company Number: US-GLAXOSMITHKLINE-A1045076A

PATIENT
  Age: 58 Year
  Sex: Female

DRUGS (2)
  1. LAMICTAL [Suspect]
     Indication: CONVULSION
     Dosage: 100MG UNKNOWN
     Dates: start: 20090305
  2. REQUIP [Suspect]
     Indication: PRODUCT USED FOR UNKNOWN INDICATION
     Dosage: .25MG UNKNOWN
     Dates: start: 20090305

REACTIONS (4)
  - Convulsion [Unknown]
  - Knee operation [Unknown]
  - Ill-defined disorder [Unknown]
  - Rehabilitation therapy [Unknown]
